FAERS Safety Report 4505426-3 (Version None)
Quarter: 2004Q4

REPORT INFORMATION
  Report Type: 
  Country: None (occurrence: None)
  Receive Date: 20041116
  Receipt Date: 20041109
  Transmission Date: 20050328
  Serious: Yes (Life-Threatening)
  Sender: FDA-Public Use
  Company Number: 2004AP05693

PATIENT
  Age: 70 Year
  Sex: Male

DRUGS (1)
  1. IRESSA [Suspect]
     Dosage: 250 MG DAILY PO
     Route: 048
     Dates: start: 20040923, end: 20041104

REACTIONS (1)
  - RESPIRATORY FAILURE [None]
